FAERS Safety Report 5303339-0 (Version None)
Quarter: 2007Q2

REPORT INFORMATION
  Report Type: 
  Country: None (occurrence: None)
  Receive Date: 20070420
  Receipt Date: 20070413
  Transmission Date: 20071010
  Serious: Yes (Hospitalization)
  Sender: FDA-Public Use
  Company Number: JP-MERCK-0702USA00537

PATIENT
  Age: 11 Year
  Sex: Male

DRUGS (7)
  1. SINGULAIR [Suspect]
     Indication: ASTHMA
     Route: 048
     Dates: start: 20060601, end: 20070203
  2. SINGULAIR [Suspect]
     Route: 048
     Dates: start: 20070221
  3. RITALIN [Suspect]
     Indication: AUTISM
     Route: 048
     Dates: start: 20060901, end: 20070203
  4. RITALIN [Suspect]
     Route: 048
     Dates: start: 20070213
  5. ZITHROMAX [Concomitant]
     Indication: BRONCHITIS
     Route: 048
     Dates: start: 20070123, end: 20070127
  6. UNASYN (AMPICILLIN SODIUM (+) SULBACTAM SODIUM) [Concomitant]
     Route: 041
     Dates: start: 20070123, end: 20070128
  7. FLUTICASONE PROPIONATE [Concomitant]
     Dates: start: 20060601

REACTIONS (3)
  - ASTHMA [None]
  - BRONCHITIS [None]
  - RASH [None]
